FAERS Safety Report 6192242-2 (Version None)
Quarter: 2009Q2

REPORT INFORMATION
  Report Type: 
  Country: None (occurrence: None)
  Receive Date: 20090515
  Receipt Date: 20090508
  Transmission Date: 20091009
  Serious: Yes (Other)
  Sender: FDA-Public Use
  Company Number: US-JNJCH-2009012996

PATIENT
  Age: 53 Year
  Sex: Female
  Weight: 63.5 kg

DRUGS (1)
  1. LISTERINE WHITENING VIBRANT WHITE PRE-BRUSH RINSE [Suspect]
     Indication: DENTAL CARE
     Dosage: TEXT:15 ML ONCE DAILY
     Route: 048
     Dates: start: 20090430, end: 20090507

REACTIONS (6)
  - EATING DISORDER [None]
  - GLOSSODYNIA [None]
  - MASTICATION DISORDER [None]
  - PARAESTHESIA ORAL [None]
  - TONGUE DISORDER [None]
  - TONGUE PARALYSIS [None]
